FAERS Safety Report 8924557 (Version 1)
Quarter: 2012Q4

REPORT INFORMATION
  Report Type: 
  Country: FR (occurrence: FR)
  Receive Date: 20121126
  Receipt Date: 20121126
  Transmission Date: 20130627
  Serious: Yes (Other)
  Sender: FDA-Public Use
  Company Number: FR-ASTRAZENECA-2012SE86636

PATIENT
  Sex: Female

DRUGS (1)
  1. CANDESARTAN [Suspect]
     Route: 048

REACTIONS (3)
  - Exposure during pregnancy [Unknown]
  - Oligohydramnios [Not Recovered/Not Resolved]
  - Foetal death [Unknown]
